FAERS Safety Report 19229764 (Version 1)
Quarter: 2021Q2

REPORT INFORMATION
  Report Type: Spontaneous
  Country: FR (occurrence: FR)
  Receive Date: 20210507
  Receipt Date: 20210507
  Transmission Date: 20210717
  Serious: Yes (Hospitalization)
  Sender: FDA-Public Use
  Company Number: FR-SA-2021SA149013

PATIENT
  Age: 27 Year
  Sex: Female
  Weight: 62.5 kg

DRUGS (5)
  1. METHYLPREDNISOLONE. [Suspect]
     Active Substance: METHYLPREDNISOLONE
     Indication: IMMUNE THROMBOCYTOPENIA
     Dosage: 1 MG/KG, QD
     Route: 041
     Dates: start: 20210212, end: 202102
  2. NEXPLANON [Suspect]
     Active Substance: ETONOGESTREL
     Indication: CONTRACEPTION
     Dosage: 1 DF
     Route: 023
  3. CORTANCYL [Suspect]
     Active Substance: PREDNISONE
     Indication: IMMUNE THROMBOCYTOPENIA
     Dosage: 10 MG, QD
     Route: 048
     Dates: start: 202102
  4. RITUXIMAB. [Suspect]
     Active Substance: RITUXIMAB
     Indication: IMMUNE THROMBOCYTOPENIA
     Dosage: 600 MG (600 MG 12/02, 16/02, 19/02 AND 03/03)
     Route: 041
     Dates: start: 20210212, end: 20210303
  5. CAPLACIZUMAB [Suspect]
     Active Substance: CAPLACIZUMAB
     Indication: IMMUNE THROMBOCYTOPENIA
     Dosage: 10 MG, QD
     Route: 041
     Dates: start: 20210211, end: 20210316

REACTIONS (1)
  - Depression [Not Recovered/Not Resolved]

NARRATIVE: CASE EVENT DATE: 202103
